FAERS Safety Report 6239825-9 (Version None)
Quarter: 2009Q2

REPORT INFORMATION
  Report Type: 
  Country: None (occurrence: None)
  Receive Date: 20090618
  Receipt Date: 20090618
  Transmission Date: 20091009
  Serious: No
  Sender: FDA-Public Use
  Company Number: None

PATIENT
  Age: 52 Year
  Sex: Male
  Weight: 106.5953 kg

DRUGS (1)
  1. ZICAM NA ZICAM LLC/ MATRIX [Suspect]
     Indication: NASOPHARYNGITIS
     Dosage: 1-2 SQUIRTS 2X/DAY FOR 2-4 DAY NASAL
     Route: 045
     Dates: start: 20070301, end: 20090301

REACTIONS (1)
  - ANOSMIA [None]
